FAERS Safety Report 5841898-X (Version None)
Quarter: 2008Q3

REPORT INFORMATION
  Report Type: 
  Country: None (occurrence: None)
  Receive Date: 20080811
  Receipt Date: 20080811
  Transmission Date: 20090109
  Serious: Yes (Disabling)
  Sender: FDA-Public Use
  Company Number: None

PATIENT
  Age: 79 Year
  Sex: Male

DRUGS (2)
  1. ETOMIDATE [Suspect]
     Indication: SEDATION
     Dosage: 14 MG X1 IV BOLUS
     Route: 040
     Dates: start: 20080808, end: 20080808
  2. FENTANYL-25 [Concomitant]

REACTIONS (1)
  - TACHYCARDIA [None]
